FAERS Safety Report 20705054 (Version 1)
Quarter: 2022Q2

REPORT INFORMATION
  Report Type: Spontaneous
  Country: FR (occurrence: FR)
  Receive Date: 20220413
  Receipt Date: 20220413
  Transmission Date: 20220721
  Serious: Yes (Other)
  Sender: FDA-Public Use
  Company Number: FR-BRISTOL-MYERS SQUIBB COMPANY-BMS-2022-026158

PATIENT
  Sex: Male
  Weight: 107 kg

DRUGS (5)
  1. NIVOLUMAB [Suspect]
     Active Substance: NIVOLUMAB
     Indication: Pleural mesothelioma malignant
     Dosage: 360 MILLIGRAM, Q3WK
     Route: 042
     Dates: start: 20210803, end: 20211230
  2. NIVOLUMAB [Suspect]
     Active Substance: NIVOLUMAB
     Dosage: 360 MILLIGRAM, Q3WK
     Route: 042
     Dates: end: 20220131
  3. IPILIMUMAB [Suspect]
     Active Substance: IPILIMUMAB
     Indication: Pleural mesothelioma malignant
     Dosage: 1 MILLIGRAM/KILOGRAM, Q6WK
     Route: 042
     Dates: start: 20210803, end: 20211230
  4. IPILIMUMAB [Suspect]
     Active Substance: IPILIMUMAB
     Dosage: 99 MILLIGRAM, Q6WK
     Route: 042
     Dates: end: 20220131
  5. NIVOLUMAB [Suspect]
     Active Substance: NIVOLUMAB
     Dosage: 360 MILLIGRAM, Q3WK
     Route: 042
     Dates: start: 20210803, end: 20211230

REACTIONS (7)
  - Autoimmune colitis [Recovered/Resolved]
  - Toxicity to various agents [Recovered/Resolved]
  - Prescribed underdose [Unknown]
  - Polymyalgia rheumatica [Recovered/Resolved]
  - Renal colic [Recovered/Resolved]
  - Fungaemia [Recovered/Resolved]
  - Sepsis [Recovered/Resolved]
